FAERS Safety Report 24270296 (Version 1)
Quarter: 2024Q3

REPORT INFORMATION
  Report Type: Spontaneous
  Country: PL (occurrence: PL)
  Receive Date: 20240830
  Receipt Date: 20240830
  Transmission Date: 20241016
  Serious: Yes (Other)
  Sender: TAIHO ONCOLOGY INC
  Company Number: None

PATIENT
  Age: 73 Year
  Sex: Male

DRUGS (11)
  1. LONSURF [Suspect]
     Active Substance: TIPIRACIL HYDROCHLORIDE\TRIFLURIDINE
     Indication: Adenocarcinoma of colon
     Dosage: UNK
     Route: 048
     Dates: start: 20220406, end: 20220810
  2. FLUOROURACIL [Suspect]
     Active Substance: FLUOROURACIL
     Indication: Adenocarcinoma of colon
     Dosage: UNK
     Route: 065
     Dates: start: 20190904
  3. FLUOROURACIL [Suspect]
     Active Substance: FLUOROURACIL
     Dosage: UNK
     Route: 065
     Dates: start: 20210608, end: 20220316
  4. OXALIPLATIN [Suspect]
     Active Substance: OXALIPLATIN
     Indication: Adenocarcinoma of colon
     Dosage: UNK
     Route: 065
     Dates: start: 20210608, end: 20220316
  5. OXALIPLATIN [Suspect]
     Active Substance: OXALIPLATIN
     Dosage: UNK
     Route: 065
     Dates: start: 20190904
  6. BEVACIZUMAB [Suspect]
     Active Substance: BEVACIZUMAB
     Indication: Adenocarcinoma of colon
     Dosage: UNK
     Route: 065
     Dates: start: 20220406, end: 20220810
  7. LEUCOVORIN [Suspect]
     Active Substance: LEUCOVORIN\LEUCOVORIN CALCIUM
     Indication: Adenocarcinoma of colon
     Dosage: UNK
     Route: 065
     Dates: start: 20210608, end: 20220316
  8. LEUCOVORIN [Suspect]
     Active Substance: LEUCOVORIN\LEUCOVORIN CALCIUM
     Dosage: UNK
     Route: 065
     Dates: start: 20190904
  9. VECTIBIX [Suspect]
     Active Substance: PANITUMUMAB
     Indication: Adenocarcinoma of colon
     Dosage: UNK
     Route: 065
     Dates: start: 20190904
  10. IRINOTECAN HYDROCHLORIDE [Concomitant]
     Active Substance: IRINOTECAN HYDROCHLORIDE
     Indication: Adenocarcinoma of colon
     Dosage: UNK
     Route: 065
     Dates: start: 20210608, end: 20220316
  11. AFLIBERCEPT [Concomitant]
     Active Substance: AFLIBERCEPT
     Indication: Adenocarcinoma of colon
     Dosage: UNK
     Route: 065
     Dates: start: 20210608, end: 20220316

REACTIONS (4)
  - Hypomagnesaemia [Recovering/Resolving]
  - Adenocarcinoma metastatic [Unknown]
  - Polyneuropathy [Unknown]
  - Therapy partial responder [Unknown]
